FAERS Safety Report 12958066 (Version 1)
Quarter: 2016Q4

REPORT INFORMATION
  Report Type: Spontaneous
  Country: US (occurrence: US)
  Receive Date: 20161120
  Receipt Date: 20161120
  Transmission Date: 20170207
  Serious: No
  Sender: FDA-Public Use
  Company Number: US-ASTRAZENECA-2016SF17757

PATIENT
  Age: 21582 Day
  Sex: Female

DRUGS (9)
  1. LEFLUNOMINDE [Concomitant]
  2. MULTI VITAMINS [Concomitant]
     Active Substance: VITAMINS
  3. TRAZODONE [Concomitant]
     Active Substance: TRAZODONE HYDROCHLORIDE
  4. PREDNISONE. [Concomitant]
     Active Substance: PREDNISONE
  5. XELJANZ XR [Suspect]
     Active Substance: TOFACITINIB CITRATE
     Indication: RHEUMATOID ARTHRITIS
     Route: 065
     Dates: start: 20161014
  6. VITAMIN B [Concomitant]
     Active Substance: VITAMIN B
  7. OXYCODONE [Concomitant]
     Active Substance: OXYCODONE
  8. QUATIAPINE [Suspect]
     Active Substance: QUETIAPINE
     Route: 048
  9. FOLIC ACID. [Concomitant]
     Active Substance: FOLIC ACID

REACTIONS (2)
  - Rhinorrhoea [Unknown]
  - Headache [Unknown]

NARRATIVE: CASE EVENT DATE: 20161016
